FAERS Safety Report 16578287 (Version 2)
Quarter: 2019Q3

REPORT INFORMATION
  Report Type: Report from Study
  Country: IT (occurrence: IT)
  Receive Date: 20190716
  Receipt Date: 20190725
  Transmission Date: 20191004
  Serious: Yes (Other)
  Sender: FDA-Public Use
  Company Number: IT-MYLANLABS-2019M1065000

PATIENT
  Age: 73 Year
  Sex: Male

DRUGS (1)
  1. KETOROLAC [Suspect]
     Active Substance: KETOROLAC TROMETHAMINE
     Indication: BACK PAIN
     Dosage: 1 DOSAGE FORM, TOTAL
     Route: 030
     Dates: start: 20181205, end: 20181205

REACTIONS (4)
  - Off label use [Unknown]
  - Angioedema [Recovering/Resolving]
  - Toxic skin eruption [Recovering/Resolving]
  - Rash [Recovering/Resolving]

NARRATIVE: CASE EVENT DATE: 20181208
